FAERS Safety Report 5315825-8 (Version None)
Quarter: 2007Q2

REPORT INFORMATION
  Report Type: 
  Country: None (occurrence: None)
  Receive Date: 20070503
  Receipt Date: 20070426
  Transmission Date: 20071010
  Serious: Yes (Disabling, Other)
  Sender: FDA-Public Use
  Company Number: GB-GLAXOSMITHKLINE-B0469028A

PATIENT
  Age: 69 Year
  Sex: Female
  Weight: 106 kg

DRUGS (11)
  1. ROSIGLITAZONE [Suspect]
     Route: 048
     Dates: start: 20070101, end: 20070227
  2. AMLODIPINE [Concomitant]
     Route: 065
  3. ASPIRIN [Concomitant]
     Route: 065
  4. ATENOLOL [Concomitant]
     Route: 065
  5. BENDROFLUAZIDE [Concomitant]
     Route: 065
  6. GLICLAZIDE [Concomitant]
     Route: 065
  7. METFORMIN HCL [Concomitant]
     Route: 065
  8. METHOTREXATE [Concomitant]
     Route: 065
  9. NABUMETONE [Concomitant]
     Route: 065
  10. NIZATIDINE [Concomitant]
     Route: 065
  11. PRAVASTATIN [Concomitant]
     Route: 065

REACTIONS (2)
  - ALVEOLITIS [None]
  - MOBILITY DECREASED [None]
